FAERS Safety Report 6550724-5 (Version None)
Quarter: 2010Q1

REPORT INFORMATION
  Report Type: 
  Country: None (occurrence: None)
  Receive Date: 20100125
  Receipt Date: 20100111
  Transmission Date: 20100710
  Serious: Yes (Hospitalization, Other)
  Sender: FDA-Public Use
  Company Number: PHHY2010ES01278

PATIENT
  Age: 82 Year
  Sex: Male

DRUGS (1)
  1. ZOMETA [Suspect]
     Indication: PROSTATE CANCER METASTATIC
     Dosage: 40 MG CYCLICALLY
     Dates: start: 20040928, end: 20080505

REACTIONS (4)
  - INFECTION [None]
  - INFLAMMATION [None]
  - OSTEONECROSIS [None]
  - SEQUESTRECTOMY [None]
